FAERS Safety Report 20698491 (Version 2)
Quarter: 2022Q2

REPORT INFORMATION
  Report Type: Spontaneous
  Country: US (occurrence: US)
  Receive Date: 20220412
  Receipt Date: 20220422
  Transmission Date: 20220720
  Serious: Yes (Hospitalization, Other)
  Sender: FDA-Public Use
  Company Number: US-AUROBINDO-AUR-APL-2022-011367

PATIENT
  Age: 13 Year
  Sex: Female

DRUGS (4)
  1. CEPHALEXIN [Suspect]
     Active Substance: CEPHALEXIN
     Indication: Limb injury
     Dosage: UNK
     Route: 065
  2. CLINDAMYCIN [Suspect]
     Active Substance: CLINDAMYCIN
     Indication: Pyrexia
     Dosage: UNK
     Route: 042
  3. CLINDAMYCIN [Suspect]
     Active Substance: CLINDAMYCIN
     Indication: Tachycardia
  4. CLINDAMYCIN [Suspect]
     Active Substance: CLINDAMYCIN
     Indication: Cellulitis

REACTIONS (10)
  - Type I hypersensitivity [Unknown]
  - Dermatitis exfoliative generalised [Not Recovered/Not Resolved]
  - Dizziness [Unknown]
  - Type IV hypersensitivity reaction [Unknown]
  - Rash [Unknown]
  - Pruritus [Unknown]
  - Pustule [Unknown]
  - Skin exfoliation [Unknown]
  - Chest discomfort [Unknown]
  - Urticaria [Recovered/Resolved]
